FAERS Safety Report 6483968-1 (Version None)
Quarter: 2009Q4

REPORT INFORMATION
  Report Type: 
  Country: None (occurrence: None)
  Receive Date: 20091208
  Receipt Date: 20091208
  Transmission Date: 20100525
  Serious: No
  Sender: FDA-Public Use
  Company Number: None

PATIENT

DRUGS (1)
  1. ORTHO TRI-CYCLEN LO [Suspect]
     Indication: CONTRACEPTION
     Dosage: ONE QD PO
     Route: 048
     Dates: start: 20090116, end: 20090608

REACTIONS (1)
  - TREATMENT NONCOMPLIANCE [None]
